FAERS Safety Report 7198419-1 (Version None)
Quarter: 2010Q4

REPORT INFORMATION
  Report Type: 
  Country: None (occurrence: None)
  Receive Date: 20101227
  Receipt Date: 20101215
  Transmission Date: 20110411
  Serious: Yes (Other)
  Sender: FDA-Public Use
  Company Number: PHHY2010BR85494

PATIENT
  Sex: Male

DRUGS (3)
  1. RASILEZ [Suspect]
     Dosage: 150 MG, ONE TABLET
  2. DIOVAN [Concomitant]
     Dosage: UNK
     Route: 048
  3. ATENOLOL [Concomitant]
     Dosage: UNK
     Route: 048

REACTIONS (1)
  - PARALYSIS [None]
